FAERS Safety Report 16076263 (Version 1)
Quarter: 2019Q1

REPORT INFORMATION
  Report Type: Spontaneous
  Country: CA (occurrence: CA)
  Receive Date: 20190315
  Receipt Date: 20190315
  Transmission Date: 20190418
  Serious: Yes (Hospitalization, Other)
  Sender: FDA-Public Use
  Company Number: CA-AUROBINDO-AUR-APL-2019-013255

PATIENT

DRUGS (7)
  1. METFORMIN TABLET [Suspect]
     Active Substance: METFORMIN HYDROCHLORIDE
     Dosage: 250 MILLIGRAM, 2 EVERY DAY
     Route: 065
  2. SANDOSTATIN [Suspect]
     Active Substance: OCTREOTIDE ACETATE
     Indication: NEUROENDOCRINE TUMOUR
     Dosage: 20 MILLIGRAM, 1 EVERY 3 DAY
     Route: 030
  3. SANDOSTATIN [Suspect]
     Active Substance: OCTREOTIDE ACETATE
     Dosage: 30MILLIGRAM, 1 EVERY 3 DAY
     Route: 030
  4. METFORMIN TABLET [Suspect]
     Active Substance: METFORMIN HYDROCHLORIDE
     Indication: TYPE 2 DIABETES MELLITUS
     Dosage: 5 DOSAGE FORM, 1 EVERY DAY
     Route: 048
  5. SANDOSTATIN [Suspect]
     Active Substance: OCTREOTIDE ACETATE
     Dosage: 40 MILLIGRAM, 1 EVERY 3 DAY
     Route: 030
  6. SYNTHROID [Concomitant]
     Active Substance: LEVOTHYROXINE SODIUM
     Indication: PRODUCT USED FOR UNKNOWN INDICATION
     Dosage: 1 DOSAGE FORM, 1 EVERY DAY
     Route: 048
  7. SYNTHROID [Concomitant]
     Active Substance: LEVOTHYROXINE SODIUM
     Dosage: 2 DOSAGE FORM, 1 EVERY DAY
     Route: 048

REACTIONS (24)
  - Fatigue [Recovering/Resolving]
  - Blood glucose increased [Recovering/Resolving]
  - Large intestine polyp [Recovering/Resolving]
  - Erythema [Recovering/Resolving]
  - Malaise [Recovering/Resolving]
  - Headache [Recovering/Resolving]
  - Inappropriate schedule of product administration [Recovering/Resolving]
  - Type 2 diabetes mellitus [Recovering/Resolving]
  - Blood pressure increased [Recovering/Resolving]
  - Dysphagia [Recovering/Resolving]
  - Flushing [Recovering/Resolving]
  - Injection site mass [Recovering/Resolving]
  - Arthralgia [Recovering/Resolving]
  - Incorrect dose administered [Recovering/Resolving]
  - Injection site discomfort [Recovering/Resolving]
  - Sensation of foreign body [Recovering/Resolving]
  - Blood calcitonin increased [Recovering/Resolving]
  - Blood pressure systolic increased [Recovering/Resolving]
  - Diarrhoea [Recovering/Resolving]
  - Pain in extremity [Recovering/Resolving]
  - Diverticulum [Recovering/Resolving]
  - Gastrooesophageal reflux disease [Recovering/Resolving]
  - Oxygen saturation abnormal [Recovering/Resolving]
  - Skin warm [Recovering/Resolving]
